FAERS Safety Report 17803051 (Version 1)
Quarter: 2020Q2

REPORT INFORMATION
  Report Type: Spontaneous
  Country: CZ (occurrence: AT)
  Receive Date: 20200519
  Receipt Date: 20200519
  Transmission Date: 20200714
  Serious: Yes (Other)
  Sender: FDA-Public Use
  Company Number: CZ-MYLANLABS-2020M1048116

PATIENT
  Age: 19 Year
  Sex: Male

DRUGS (11)
  1. VINORELBINE [Suspect]
     Active Substance: VINORELBINE TARTRATE
     Dosage: 20 MG/M2 EVERY 7 DAYS FOR 12 WEEKS
     Route: 065
  2. VINORELBINE [Suspect]
     Active Substance: VINORELBINE TARTRATE
     Indication: BRAIN STEM GLIOMA
     Dosage: 25 MG/KG DAILY EVERY 14 DAYS
     Route: 065
  3. NIMOTUZUMAB [Suspect]
     Active Substance: NIMOTUZUMAB
     Indication: BRAIN STEM GLIOMA
     Dosage: 150 MG/M2, UNK
     Route: 065
  4. NIVOLUMAB [Suspect]
     Active Substance: NIVOLUMAB
     Dosage: 3 MILLIGRAM/KILOGRAM, BIWEEKLY
     Route: 065
  5. NIVOLUMAB [Suspect]
     Active Substance: NIVOLUMAB
     Dosage: 1 MILLIGRAM/KILOGRAM, BIWEEKLY
     Route: 065
  6. METOCLOPRAMIDE. [Suspect]
     Active Substance: METOCLOPRAMIDE
     Indication: BRAIN STEM GLIOMA
     Dosage: 0.4 MG/KG, TID (3/DAY)
     Route: 065
  7. VALPROATE [Suspect]
     Active Substance: VALPROIC ACID
     Indication: BRAIN STEM GLIOMA
     Dosage: 80-100 ?G/ML
     Route: 065
  8. NIVOLUMAB [Suspect]
     Active Substance: NIVOLUMAB
     Indication: BRAIN STEM GLIOMA
     Dosage: 3 MG/KG, WEEKLY
     Route: 065
  9. NIVOLUMAB [Suspect]
     Active Substance: NIVOLUMAB
     Dosage: 1 MG/KG, WEEKLY  UNK
     Route: 065
  10. RITUXIMAB. [Suspect]
     Active Substance: RITUXIMAB
     Indication: BRAIN STEM GLIOMA
     Dosage: UNK
     Route: 065
  11. VALPROATE [Suspect]
     Active Substance: VALPROIC ACID
     Dosage: UNK

REACTIONS (3)
  - Off label use [Unknown]
  - Encephalitis autoimmune [Recovering/Resolving]
  - Product use in unapproved indication [Unknown]
